FAERS Safety Report 13534515 (Version 2)
Quarter: 2017Q3

REPORT INFORMATION
  Report Type: Spontaneous
  Country: US (occurrence: US)
  Receive Date: 20170511
  Receipt Date: 20170712
  Transmission Date: 20171127
  Serious: Yes (Other)
  Sender: FDA-Public Use
  Company Number: US-REGENERON PHARMACEUTICALS, INC.-2017-15299

PATIENT

DRUGS (3)
  1. EYLEA [Suspect]
     Active Substance: AFLIBERCEPT
     Indication: NEOVASCULAR AGE-RELATED MACULAR DEGENERATION
     Dosage: 2 MG, MONTHLY, OS, FIRST DOSE
     Route: 031
     Dates: start: 20170105
  2. EYLEA [Suspect]
     Active Substance: AFLIBERCEPT
     Dosage: 2 MG, MONTHLY, OS
     Route: 031
     Dates: start: 201703
  3. TRAMADOL. [Concomitant]
     Active Substance: TRAMADOL
     Indication: PRODUCT USED FOR UNKNOWN INDICATION
     Dosage: UNK, AS NECESSARY

REACTIONS (11)
  - Eyelid rash [Recovered/Resolved]
  - Visual impairment [Recovered/Resolved]
  - Abnormal sensation in eye [Unknown]
  - Injection site discomfort [Unknown]
  - Rash [Recovered/Resolved]
  - Drug dose omission [Unknown]
  - Rash [Not Recovered/Not Resolved]
  - Eye pain [Recovered/Resolved]
  - Allergy to chemicals [Unknown]
  - Ocular hyperaemia [Recovered/Resolved]
  - Hypersensitivity [Recovered/Resolved]

NARRATIVE: CASE EVENT DATE: 2017
